FAERS Safety Report 8343597-1 (Version None)
Quarter: 2012Q2

REPORT INFORMATION
  Report Type: 
  Country: None (occurrence: None)
  Receive Date: 20120508
  Receipt Date: 20120507
  Transmission Date: 20120825
  Serious: Yes (Other)
  Sender: FDA-Public Use
  Company Number: US-PFIZER INC-2012111223

PATIENT
  Sex: Female
  Weight: 63 kg

DRUGS (2)
  1. NORVASC [Suspect]
     Indication: HYPERTENSION
     Dosage: 5 MG, 2X/DAY
  2. PAXIL [Concomitant]
     Indication: DEPRESSION
     Dosage: 25 MG, DAILY
     Dates: start: 20010101

REACTIONS (1)
  - BREAST CANCER FEMALE [None]
